FAERS Safety Report 7875829-8 (Version None)
Quarter: 2011Q4

REPORT INFORMATION
  Report Type: 
  Country: None (occurrence: None)
  Receive Date: 20111031
  Receipt Date: 20111024
  Transmission Date: 20120403
  Serious: Yes (Other)
  Sender: FDA-Public Use
  Company Number: BR-ROCHE-796501

PATIENT
  Sex: Male
  Weight: 79 kg

DRUGS (5)
  1. PANTOPRAZOLE [Concomitant]
     Indication: HEPATIC CIRRHOSIS
     Route: 048
  2. PEGINTERFERON ALFA-2A [Suspect]
     Indication: HEPATITIS C
     Route: 058
     Dates: start: 20091215, end: 20091228
  3. COPEGUS [Suspect]
     Indication: HEPATITIS C
     Dosage: DAILY
     Route: 048
     Dates: start: 20091215, end: 20091229
  4. ATENOLOL [Concomitant]
     Indication: HEPATIC CIRRHOSIS
     Route: 048
  5. SPIRONOLACTONE [Concomitant]
     Indication: HEPATIC CIRRHOSIS
     Route: 048

REACTIONS (2)
  - ERYSIPELAS [None]
  - THROMBOPHLEBITIS [None]
